FAERS Safety Report 13210790 (Version 1)
Quarter: 2017Q1

REPORT INFORMATION
  Report Type: Spontaneous
  Country: US (occurrence: US)
  Receive Date: 20170209
  Receipt Date: 20170209
  Transmission Date: 20170428
  Serious: Yes (Other)
  Sender: FDA-Public Use
  Company Number: None

PATIENT
  Age: 54 Year
  Sex: Female

DRUGS (1)
  1. REVLIMID [Suspect]
     Active Substance: LENALIDOMIDE
     Indication: PLASMA CELL MYELOMA
     Route: 048
     Dates: start: 20170111

REACTIONS (6)
  - Pyrexia [None]
  - Dyspnoea [None]
  - Respiratory tract congestion [None]
  - Viral infection [None]
  - Wheezing [None]
  - Oropharyngeal pain [None]

NARRATIVE: CASE EVENT DATE: 20170116
